FAERS Safety Report 16304839 (Version 7)
Quarter: 2019Q3

REPORT INFORMATION
  Report Type: Spontaneous
  Country: US (occurrence: US)
  Receive Date: 20190513
  Receipt Date: 20190923
  Transmission Date: 20191004
  Serious: Yes (Hospitalization)
  Sender: FDA-Public Use
  Company Number: US-ACTELION-A-NJ2019-189360

PATIENT
  Age: 56 Year
  Sex: Male
  Weight: 133.79 kg

DRUGS (8)
  1. UPTRAVI [Suspect]
     Active Substance: SELEXIPAG
     Dosage: 800 MCG, BID
     Route: 048
  2. TADALAFIL. [Concomitant]
     Active Substance: TADALAFIL
  3. LETAIRIS [Concomitant]
     Active Substance: AMBRISENTAN
  4. UPTRAVI [Suspect]
     Active Substance: SELEXIPAG
     Dosage: 200 MCG, BID
     Route: 048
  5. UPTRAVI [Suspect]
     Active Substance: SELEXIPAG
     Dosage: 1000 MCG, BID
     Route: 048
  6. ELIQUIS [Concomitant]
     Active Substance: APIXABAN
  7. UPTRAVI [Suspect]
     Active Substance: SELEXIPAG
     Dosage: 400 MCG, BID
     Route: 048
     Dates: start: 20190407
  8. UPTRAVI [Suspect]
     Active Substance: SELEXIPAG
     Indication: PULMONARY ARTERIAL HYPERTENSION
     Dosage: 600 MCG, BID
     Route: 048

REACTIONS (12)
  - Headache [Not Recovered/Not Resolved]
  - Constipation [Unknown]
  - Malaise [Unknown]
  - Presyncope [Unknown]
  - Hypotension [Unknown]
  - Dizziness [Unknown]
  - Dyspnoea [Unknown]
  - Diarrhoea [Unknown]
  - Therapy non-responder [Unknown]
  - Cardiac disorder [Unknown]
  - Transient ischaemic attack [Unknown]
  - Fatigue [Unknown]

NARRATIVE: CASE EVENT DATE: 20190407
